FAERS Safety Report 8620327-7 (Version None)
Quarter: 2012Q3

REPORT INFORMATION
  Report Type: 
  Country: None (occurrence: None)
  Receive Date: 20120824
  Receipt Date: 20120821
  Transmission Date: 20120928
  Serious: Yes (Hospitalization)
  Sender: FDA-Public Use
  Company Number: US-009507513-2012SP017433

PATIENT

DRUGS (2)
  1. NUVARING [Suspect]
     Indication: CONTRACEPTION
     Dosage: UNK
     Dates: start: 20100101, end: 20100401
  2. NUVARING [Suspect]
     Indication: MIGRAINE

REACTIONS (7)
  - DEEP VEIN THROMBOSIS [None]
  - BACK PAIN [None]
  - DRUG HYPERSENSITIVITY [None]
  - IRRITABLE BOWEL SYNDROME [None]
  - ANOPLASTY [None]
  - RASH [None]
  - RECTOCELE REPAIR [None]
